FAERS Safety Report 24114205 (Version 1)
Quarter: 2024Q3

REPORT INFORMATION
  Report Type: Spontaneous
  Country: FR (occurrence: FR)
  Receive Date: 20240720
  Receipt Date: 20240720
  Transmission Date: 20241016
  Serious: Yes (Life-Threatening, Other)
  Sender: AUROBINDO
  Company Number: FR-AFSSAPS-NC2024000809

PATIENT
  Age: 76 Year
  Sex: Male

DRUGS (2)
  1. VALACYCLOVIR [Interacting]
     Active Substance: VALACYCLOVIR HYDROCHLORIDE
     Indication: Herpes zoster
     Dosage: 3 GRAM, ONCE A DAY
     Route: 042
     Dates: start: 20240619, end: 20240623
  2. CEFEPIME HYDROCHLORIDE [Interacting]
     Active Substance: CEFEPIME HYDROCHLORIDE
     Indication: Serratia bacteraemia
     Dosage: 6 GRAM, ONCE A DAY
     Route: 042
     Dates: start: 20240621, end: 20240623

REACTIONS (2)
  - Encephalopathy [Recovering/Resolving]
  - Somnolence [Recovering/Resolving]

NARRATIVE: CASE EVENT DATE: 20240622
